FAERS Safety Report 5063627-2 (Version None)
Quarter: 2006Q3

REPORT INFORMATION
  Report Type: 
  Country: None (occurrence: None)
  Receive Date: 20060724
  Receipt Date: 20060713
  Transmission Date: 20061208
  Serious: Yes (Hospitalization)
  Sender: FDA-Public Use
  Company Number: HQWYE890513JUL06

PATIENT
  Age: 22 Year
  Sex: Female

DRUGS (3)
  1. PANTOPRAZOLE SODIUM [Suspect]
     Dosage: 40 MG 2X PER 1 DAY
  2. AMOXICILLIN [Suspect]
     Dosage: 1000 MG 2X PER 1 DAY
  3. CLARITHROMYCIN [Suspect]
     Dosage: 500 MG 2X PER 1 DAY

REACTIONS (1)
  - PSYCHOTIC DISORDER [None]
